FAERS Safety Report 11272636 (Version 1)
Quarter: 2015Q3

REPORT INFORMATION
  Report Type: Spontaneous
  Country: US (occurrence: None)
  Receive Date: 20150714
  Receipt Date: 20150714
  Transmission Date: 20151125
  Serious: Yes (Hospitalization)
  Sender: FDA-Public Use
  Company Number: None

PATIENT
  Age: 74 Year
  Sex: Female
  Weight: 62.6 kg

DRUGS (10)
  1. SIMVASTATIN. [Concomitant]
     Active Substance: SIMVASTATIN
  2. LORATADINE. [Concomitant]
     Active Substance: LORATADINE
  3. GABAPENTIN. [Concomitant]
     Active Substance: GABAPENTIN
  4. SODIUM [Concomitant]
     Active Substance: SODIUM
  5. GLUCOSAMINE /CHONDROTIN MSN [Concomitant]
  6. CITRACAL + D [Concomitant]
     Active Substance: CALCIUM CITRATE\VITAMIN D
  7. NAPROXEN. [Concomitant]
     Active Substance: NAPROXEN
  8. MULTIVITAMIN [Concomitant]
     Active Substance: VITAMINS
  9. ALENDRONATE SODIUM 70 MG TABLET TEVA PHARMACEUTICALS USA [Suspect]
     Active Substance: ALENDRONATE SODIUM
     Indication: OSTEOPENIA
     Dosage: 1 PILL
     Route: 048
     Dates: start: 2005, end: 20150308
  10. ASPIRINE [Concomitant]
     Active Substance: ASPIRIN

REACTIONS (2)
  - Gait disturbance [None]
  - Femur fracture [None]

NARRATIVE: CASE EVENT DATE: 20130313
